FAERS Safety Report 13652842 (Version 1)
Quarter: 2017Q2

REPORT INFORMATION
  Report Type: Spontaneous
  Country: US (occurrence: US)
  Receive Date: 20170614
  Receipt Date: 20170614
  Transmission Date: 20170830
  Serious: No
  Sender: FDA-Public Use
  Company Number: US-ROCHE-1567640

PATIENT
  Sex: Male

DRUGS (1)
  1. XELODA [Suspect]
     Active Substance: CAPECITABINE
     Indication: COLON CANCER
     Dosage: TOOK 2 PILLSQD X 7D THOUGH PRESCRIBED 4 PILLSQDX5D
     Route: 065

REACTIONS (3)
  - Medication error [Unknown]
  - Abdominal discomfort [Unknown]
  - Decreased appetite [Unknown]
